FAERS Safety Report 5322451-3 (Version None)
Quarter: 2007Q2

REPORT INFORMATION
  Report Type: 
  Country: None (occurrence: None)
  Receive Date: 20070220
  Receipt Date: 20070103
  Transmission Date: 20071010
  Serious: No
  Sender: FDA-Public Use
  Company Number: WAES0701USA00400

PATIENT
  Age: 68 Year
  Sex: Female

DRUGS (11)
  1. JANUVIA [Suspect]
     Indication: DIABETES MELLITUS NON-INSULIN-DEPENDENT
     Dosage: 50 MG DAILY PO
     Route: 048
     Dates: start: 20061203
  2. ACTOS [Concomitant]
  3. AMARYL [Concomitant]
  4. BENICAR [Concomitant]
  5. FIBERCON [Concomitant]
  6. NEXIUM [Concomitant]
  7. PROZAC [Concomitant]
  8. TYLENOL [Concomitant]
  9. ZETIA [Concomitant]
  10. ASPIRIN [Concomitant]
  11. OMEGA-3 MARINE TRIGLYCERIDES [Concomitant]

REACTIONS (2)
  - COUGH [None]
  - RHINORRHOEA [None]
